FAERS Safety Report 11671365 (Version 1)
Quarter: 2015Q4

REPORT INFORMATION
  Report Type: Spontaneous
  Country: US (occurrence: US)
  Receive Date: 20151027
  Receipt Date: 20151027
  Transmission Date: 20160304
  Serious: No
  Sender: FDA-Public Use
  Company Number: US-ELI_LILLY_AND_COMPANY-US201005000001

PATIENT
  Sex: Female

DRUGS (6)
  1. DARVOCET [Concomitant]
     Active Substance: ACETAMINOPHEN\PROPOXYPHENE HYDROCHLORIDE
  2. FORTEO [Suspect]
     Active Substance: TERIPARATIDE
     Dosage: 20 UG, DAILY (1/D)
  3. BACLOFEN. [Concomitant]
     Active Substance: BACLOFEN
  4. FORTEO [Suspect]
     Active Substance: TERIPARATIDE
     Indication: OSTEOPOROSIS
     Dosage: 20 UG, DAILY (1/D)
     Dates: start: 200910
  5. METOPROLOL [Concomitant]
     Active Substance: METOPROLOL
  6. LORAZEPAM. [Concomitant]
     Active Substance: LORAZEPAM

REACTIONS (6)
  - Chills [Unknown]
  - Muscle spasms [Unknown]
  - Weight decreased [Unknown]
  - Decreased appetite [Unknown]
  - Pain in extremity [Unknown]
  - Asthenia [Unknown]
